FAERS Safety Report 4685317-8 (Version None)
Quarter: 2005Q2

REPORT INFORMATION
  Report Type: 
  Country: None (occurrence: None)
  Receive Date: 20050608
  Receipt Date: 20050526
  Transmission Date: 20051028
  Serious: Yes (Hospitalization)
  Sender: FDA-Public Use
  Company Number: US-GLAXOSMITHKLINE-A0560235A

PATIENT
  Age: 58 Year
  Sex: Female

DRUGS (2)
  1. NICODERM CQ [Suspect]
     Indication: SMOKING CESSATION THERAPY
     Dosage: 21MG PER DAY
     Route: 062
     Dates: start: 19970101
  2. NICORETTE [Suspect]
     Indication: NICOTINE DEPENDENCE
     Route: 002

REACTIONS (5)
  - DIVERTICULITIS [None]
  - DRUG ABUSER [None]
  - INJURY [None]
  - INTENTIONAL MISUSE [None]
  - NICOTINE DEPENDENCE [None]
